FAERS Safety Report 7641468-7 (Version None)
Quarter: 2011Q3

REPORT INFORMATION
  Report Type: 
  Country: None (occurrence: None)
  Receive Date: 20110722
  Receipt Date: 20110713
  Transmission Date: 20111222
  Serious: Yes (Hospitalization, Other)
  Sender: FDA-Public Use
  Company Number: 2011050207

PATIENT
  Age: 52 Year
  Sex: Female
  Weight: 61.2356 kg

DRUGS (14)
  1. OXYCODONE HCL [Concomitant]
  2. UNKNOWN STUDY MEDICATION [Suspect]
     Indication: NON-SMALL CELL LUNG CANCER
     Dosage: 500 MG (250 MG, 2 IN 1 D),ORAL; 500 MG (250 MG, 2 IN 1 D), ORAL
     Route: 048
     Dates: start: 20110517
  3. UNKNOWN STUDY MEDICATION [Suspect]
     Indication: NON-SMALL CELL LUNG CANCER
     Dosage: 500 MG (250 MG, 2 IN 1 D),ORAL; 500 MG (250 MG, 2 IN 1 D), ORAL
     Route: 048
     Dates: start: 20110215, end: 20110406
  4. PREVACID [Concomitant]
  5. TRAZODONE HCL [Suspect]
     Indication: INSOMNIA
     Dosage: 50 MG, QHS, ORAL
     Route: 048
     Dates: start: 20110329, end: 20110416
  6. TRAZODONE HCL [Suspect]
     Indication: DEPRESSION
     Dosage: 50 MG, QHS, ORAL
     Route: 048
     Dates: start: 20110329, end: 20110416
  7. KLONOPIN [Concomitant]
  8. NIFEREX FORTE (CYANOCOBALAMIN, FOLIC ACID, CALCIUM ASCORBATE, POLYSACC [Concomitant]
  9. ZOFRAN [Concomitant]
  10. OXYCONTIN [Concomitant]
  11. SEROQUEL [Concomitant]
  12. LYRICA [Concomitant]
  13. SOMA [Suspect]
     Indication: MUSCLE SPASMS
     Dosage: 1400 MG (350 MG, 4 IN 1 D),ORAL
     Route: 048
     Dates: start: 20110415, end: 20110416
  14. COLACE (DOCUSATE SODIUM) [Concomitant]

REACTIONS (17)
  - ILEUS [None]
  - PAIN [None]
  - OVERDOSE [None]
  - PNEUMONIA [None]
  - BLOOD CALCIUM DECREASED [None]
  - TOXICITY TO VARIOUS AGENTS [None]
  - LOSS OF CONSCIOUSNESS [None]
  - SYNCOPE [None]
  - SEDATION [None]
  - MENTAL STATUS CHANGES [None]
  - SINUS TACHYCARDIA [None]
  - BLOOD CREATINE PHOSPHOKINASE INCREASED [None]
  - DEPRESSED LEVEL OF CONSCIOUSNESS [None]
  - HYPOXIA [None]
  - ANAEMIA [None]
  - MUSCLE SPASMS [None]
  - UNRESPONSIVE TO STIMULI [None]
